FAERS Safety Report 17455194 (Version 1)
Quarter: 2020Q1

REPORT INFORMATION
  Report Type: Spontaneous
  Country: RU (occurrence: RU)
  Receive Date: 20200225
  Receipt Date: 20200225
  Transmission Date: 20200409
  Serious: Yes (Other)
  Sender: FDA-Public Use
  Company Number: RU-KAMADA LIMITED-2020RU001148

PATIENT

DRUGS (1)
  1. REBINOLIN [Suspect]
     Active Substance: RABIES IMMUNE GLOBULIN (HUMAN)
     Indication: ANIMAL BITE
     Dosage: 0.5 ML, SINGLE
     Route: 030
     Dates: start: 20190518, end: 20190518

REACTIONS (1)
  - Injection site erythema [Recovered/Resolved]

NARRATIVE: CASE EVENT DATE: 20190518
